FAERS Safety Report 19360286 (Version 1)
Quarter: 2021Q2

REPORT INFORMATION
  Report Type: Spontaneous
  Country: US (occurrence: US)
  Receive Date: 20210601
  Receipt Date: 20210601
  Transmission Date: 20210717
  Serious: No
  Sender: FDA-Public Use
  Company Number: US-PFIZER INC-2021307748

PATIENT
  Age: 28 Year
  Sex: Male

DRUGS (3)
  1. SOLU?MEDROL [Suspect]
     Active Substance: METHYLPREDNISOLONE SODIUM SUCCINATE
     Dosage: UNK
  2. BENADRYL [Suspect]
     Active Substance: DIPHENHYDRAMINE HYDROCHLORIDE
     Dosage: UNK
  3. OCREVUS [Suspect]
     Active Substance: OCRELIZUMAB
     Dosage: UNK

REACTIONS (2)
  - Diarrhoea [Unknown]
  - Nausea [Unknown]
